FAERS Safety Report 13335987 (Version 1)
Quarter: 2017Q1

REPORT INFORMATION
  Report Type: Report from Study
  Country: US (occurrence: US)
  Receive Date: 20170314
  Receipt Date: 20170314
  Transmission Date: 20170428
  Serious: Yes (Death, Other)
  Sender: FDA-Public Use
  Company Number: US-ARIAD-2016US007284

PATIENT
  Age: 61 Year
  Sex: Female

DRUGS (3)
  1. ICLUSIG [Suspect]
     Active Substance: PONATINIB
     Dosage: 15 MG, QD
     Route: 048
  2. ICLUSIG [Suspect]
     Active Substance: PONATINIB
     Indication: CHRONIC MYELOID LEUKAEMIA
     Dosage: 45 MG, QD
     Route: 048
     Dates: start: 20161107
  3. ICLUSIG [Suspect]
     Active Substance: PONATINIB
     Dosage: 22.5 MG, QD
     Route: 048

REACTIONS (8)
  - Transfusion [Not Recovered/Not Resolved]
  - Intentional product misuse [Unknown]
  - Pyrexia [Unknown]
  - Death [Fatal]
  - Tremor [Unknown]
  - Platelet count decreased [Unknown]
  - Malaise [Unknown]
  - Hypertension [Unknown]

NARRATIVE: CASE EVENT DATE: 20170306
